FAERS Safety Report 25615476 (Version 1)
Quarter: 2025Q3

REPORT INFORMATION
  Report Type: Spontaneous
  Country: TR (occurrence: US)
  Receive Date: 20250729
  Receipt Date: 20250729
  Transmission Date: 20251021
  Serious: No
  Sender: APOTEX
  Company Number: TR-APOTEX-2025AP009937

PATIENT

DRUGS (2)
  1. MELPHALAN [Suspect]
     Active Substance: MELPHALAN
     Indication: Primary amyloidosis
     Route: 065
  2. MELPHALAN [Suspect]
     Active Substance: MELPHALAN
     Indication: Factor X deficiency

REACTIONS (1)
  - Haemorrhage [Unknown]
